FAERS Safety Report 8571560-4 (Version None)
Quarter: 2012Q3

REPORT INFORMATION
  Report Type: 
  Country: None (occurrence: None)
  Receive Date: 20120806
  Receipt Date: 20120731
  Transmission Date: 20120928
  Serious: Yes (Other)
  Sender: FDA-Public Use
  Company Number: PHHY2012BR057834

PATIENT
  Sex: Male

DRUGS (11)
  1. COUMADIN [Suspect]
     Dosage: 1 MG, UNK
  2. BENERVA [Concomitant]
     Indication: MUSCLE DISORDER
     Dosage: 1 DF, UNK
     Route: 048
     Dates: start: 20120701
  3. LYRICA [Concomitant]
     Indication: PAIN
  4. MOTILIUM [Concomitant]
     Dosage: 2 DF, UNK
     Route: 048
     Dates: start: 20120501
  5. DIOVAN [Suspect]
     Dosage: 80 MG, UNK
     Dates: start: 20070101
  6. OMEPRAZOLE [Concomitant]
     Indication: GASTROOESOPHAGEAL REFLUX DISEASE
  7. LYRICA [Concomitant]
     Indication: BURSITIS
  8. OMEPRAZOLE [Concomitant]
     Indication: GASTRIC DISORDER
     Dosage: 1 DF, UNK
     Route: 048
  9. OMEPRAZOLE [Concomitant]
     Indication: DYSPEPSIA
  10. COUMARIN [Concomitant]
     Indication: COAGULOPATHY
     Dosage: UNK
     Dates: start: 20070101
  11. LYRICA [Concomitant]
     Indication: SLEEP DISORDER

REACTIONS (3)
  - VIITH NERVE PARALYSIS [None]
  - CEREBROVASCULAR ACCIDENT [None]
  - COAGULOPATHY [None]
